FAERS Safety Report 11930472 (Version 2)
Quarter: 2016Q1

REPORT INFORMATION
  Report Type: Report from Study
  Country: US (occurrence: US)
  Receive Date: 20160120
  Receipt Date: 20160125
  Transmission Date: 20160526
  Serious: Yes (Hospitalization)
  Sender: FDA-Public Use
  Company Number: US-ACTELION-A-NJ2016-129990

PATIENT
  Age: 60 Year
  Sex: Male

DRUGS (6)
  1. ADCIRCA [Suspect]
     Active Substance: TADALAFIL
     Indication: PULMONARY ARTERIAL HYPERTENSION
     Dosage: 40 MG, QD
     Route: 065
     Dates: start: 20141114
  2. EPLERENONE. [Concomitant]
     Active Substance: EPLERENONE
     Dosage: 25 MG, BID
  3. DIGOXIN. [Concomitant]
     Active Substance: DIGOXIN
     Dosage: 125 MCG, QD
  4. BUMEX [Concomitant]
     Active Substance: BUMETANIDE
     Dosage: 1 MG, TID
  5. CARVEDILOL. [Concomitant]
     Active Substance: CARVEDILOL
     Dosage: 3.125 MG, BID
  6. MACITENTAN [Suspect]
     Active Substance: MACITENTAN
     Indication: PULMONARY ARTERIAL HYPERTENSION
     Dosage: 10 MG, QD
     Route: 048
     Dates: start: 20140501

REACTIONS (4)
  - Pneumonia [Unknown]
  - Chronic obstructive pulmonary disease [Recovering/Resolving]
  - Myocardial infarction [Unknown]
  - Cyanosis [Unknown]
